FAERS Safety Report 16203684 (Version 1)
Quarter: 2019Q2

REPORT INFORMATION
  Report Type: Spontaneous
  Country: FR (occurrence: FR)
  Receive Date: 20190416
  Receipt Date: 20190416
  Transmission Date: 20190711
  Serious: Yes (Other)
  Sender: FDA-Public Use
  Company Number: FR-MYLANLABS-2019M1036175

PATIENT
  Age: 59 Year
  Sex: Male

DRUGS (2)
  1. MEROPENEM MYLAN [Suspect]
     Active Substance: MEROPENEM
     Indication: PROPHYLAXIS
     Dosage: 3 GRAM, QD
     Route: 042
     Dates: start: 20181104, end: 20181106
  2. ACICLOVIR [Suspect]
     Active Substance: ACYCLOVIR
     Indication: PROPHYLAXIS
     Dosage: 1.5 GRAM, QD
     Route: 042
     Dates: start: 20181026, end: 20181207

REACTIONS (2)
  - Hepatocellular injury [Recovered/Resolved]
  - Cholestasis [Recovered/Resolved]

NARRATIVE: CASE EVENT DATE: 20181108
